FAERS Safety Report 10143286 (Version 1)
Quarter: 2014Q2

REPORT INFORMATION
  Report Type: Spontaneous
  Country: US (occurrence: None)
  Receive Date: 20140429
  Receipt Date: 20140429
  Transmission Date: 20141212
  Serious: No
  Sender: FDA-Public Use
  Company Number: None

PATIENT
  Age: 72 Year
  Sex: Female
  Weight: 82.56 kg

DRUGS (1)
  1. XELJANZ [Suspect]
     Route: 048
     Dates: start: 201306, end: 201402

REACTIONS (3)
  - Night sweats [None]
  - Blood urine [None]
  - Unevaluable event [None]
